FAERS Safety Report 6384989-X (Version None)
Quarter: 2009Q4

REPORT INFORMATION
  Report Type: 
  Country: None (occurrence: None)
  Receive Date: 20091002
  Receipt Date: 20090921
  Transmission Date: 20100525
  Serious: Yes (Hospitalization, Other)
  Sender: FDA-Public Use
  Company Number: US-ROCHE-658091

PATIENT
  Age: 57 Year
  Sex: Female

DRUGS (5)
  1. PEGASYS [Suspect]
     Indication: HEPATITIS C
     Dosage: FORM: PRE FILLED SYRINGE
     Route: 058
     Dates: start: 20071001
  2. RIBAVIRIN [Suspect]
     Indication: HEPATITIS C
     Route: 065
     Dates: start: 20071001
  3. ABILIFY [Concomitant]
     Indication: ANXIETY
     Dates: start: 20071001
  4. CLONAZEPAM [Concomitant]
     Indication: ANXIETY
     Dates: start: 20071001
  5. PERCOCET [Concomitant]
     Indication: ANXIETY
     Dates: start: 20071001

REACTIONS (5)
  - FALL [None]
  - HEAD INJURY [None]
  - RED BLOOD CELL COUNT ABNORMAL [None]
  - SYSTEMIC LUPUS ERYTHEMATOSUS [None]
  - WHITE BLOOD CELL COUNT DECREASED [None]
